FAERS Safety Report 4592074-2 (Version None)
Quarter: 2005Q1

REPORT INFORMATION
  Report Type: 
  Country: None (occurrence: None)
  Receive Date: 20050125
  Receipt Date: 20040825
  Transmission Date: 20050727
  Serious: No
  Sender: FDA-Public Use
  Company Number: USA040876571

PATIENT
  Age: 55 Year
  Sex: Female

DRUGS (3)
  1. FORTEO [Suspect]
     Dates: start: 20030101
  2. REMICADE [Concomitant]
  3. CORTICOSTEROID NOS [Concomitant]

REACTIONS (4)
  - CROHN'S DISEASE [None]
  - FEELING ABNORMAL [None]
  - SCLERODERMA [None]
  - SPINAL FRACTURE [None]
